FAERS Safety Report 6746838-7 (Version None)
Quarter: 2010Q2

REPORT INFORMATION
  Report Type: 
  Country: None (occurrence: None)
  Receive Date: 20100528
  Receipt Date: 20100224
  Transmission Date: 20101027
  Serious: No
  Sender: FDA-Public Use
  Company Number: A0846258A

PATIENT
  Sex: Female

DRUGS (1)
  1. VENTOLIN [Suspect]
     Dates: start: 20100223

REACTIONS (1)
  - DIZZINESS [None]
